FAERS Safety Report 5565535-7 (Version None)
Quarter: 2007Q4

REPORT INFORMATION
  Report Type: 
  Country: None (occurrence: None)
  Receive Date: 20071218
  Receipt Date: 20050622
  Transmission Date: 20080405
  Serious: Yes (Death)
  Sender: FDA-Public Use
  Company Number: AR-ROCHE-408459

PATIENT
  Age: 55 Year
  Sex: Female

DRUGS (1)
  1. XELODA [Suspect]
     Indication: BREAST CANCER
     Dosage: STRENGTH REPORTED AS 150/500 MG
     Route: 048
     Dates: start: 20050301

REACTIONS (2)
  - DEATH [None]
  - MUCOSAL INFLAMMATION [None]
